FAERS Safety Report 4389160-9 (Version None)
Quarter: 2004Q3

REPORT INFORMATION
  Report Type: 
  Country: None (occurrence: None)
  Receive Date: 20040702
  Receipt Date: 20040625
  Transmission Date: 20050211
  Serious: Yes (Death, Life-Threatening)
  Sender: FDA-Public Use
  Company Number: 200416432GDDC

PATIENT
  Age: 5 Year
  Sex: Female

DRUGS (6)
  1. RIFAMPICIN [Suspect]
     Indication: TUBERCULOSIS
     Dosage: DOSE: UNK
  2. ISONIAZID [Suspect]
     Indication: TUBERCULOSIS
     Dosage: DOSE: UNK
  3. PYRAZINAMIDE [Suspect]
     Indication: TUBERCULOSIS
     Dosage: DOSE: UNK
  4. ETHAMBUTOL HCL [Suspect]
     Indication: TUBERCULOSIS
     Dosage: DOSE: UNK
  5. INFLIXIMAB [Suspect]
     Indication: JUVENILE ARTHRITIS
  6. ANAESTHETICS [Suspect]
     Indication: CENTRAL VENOUS CATHETERISATION
     Dosage: DOSE: UNK

REACTIONS (10)
  - ACUTE RESPIRATORY FAILURE [None]
  - BACTERIAL CULTURE POSITIVE [None]
  - CARDIAC ARREST [None]
  - ENTEROBACTER BACTERAEMIA [None]
  - ESCHERICHIA BACTERAEMIA [None]
  - JOINT SWELLING [None]
  - LUNG INFECTION [None]
  - OPPORTUNISTIC INFECTION [None]
  - SHOCK [None]
  - TUBERCULOSIS [None]
